FAERS Safety Report 4545072-9 (Version None)
Quarter: 2005Q1

REPORT INFORMATION
  Report Type: 
  Country: None (occurrence: None)
  Receive Date: 20041222
  Receipt Date: 20040921
  Transmission Date: 20050727
  Serious: Yes (Hospitalization, Other)
  Sender: FDA-Public Use
  Company Number: US_0409106080

PATIENT
  Age: 69 Year
  Sex: Female
  Weight: 114 kg

DRUGS (2)
  1. HUMALOG [Suspect]
     Dosage: 45 U DAY
  2. ACTOS [Concomitant]

REACTIONS (12)
  - ABDOMINAL DISTENSION [None]
  - BLOOD GLUCOSE DECREASED [None]
  - BURNING SENSATION [None]
  - INJECTION SITE HAEMORRHAGE [None]
  - INJECTION SITE PAIN [None]
  - KIDNEY INFECTION [None]
  - LIPOHYPERTROPHY [None]
  - MEMORY IMPAIRMENT [None]
  - PAIN IN EXTREMITY [None]
  - PYREXIA [None]
  - SEPSIS [None]
  - WEIGHT INCREASED [None]
